FAERS Safety Report 7682389-3 (Version None)
Quarter: 2011Q3

REPORT INFORMATION
  Report Type: 
  Country: None (occurrence: None)
  Receive Date: 20110810
  Receipt Date: 20110808
  Transmission Date: 20111222
  Serious: Yes (Life-Threatening, Hospitalization)
  Sender: FDA-Public Use
  Company Number: 2011SP037240

PATIENT
  Age: 47 Year
  Sex: Female

DRUGS (8)
  1. THYROXIN [Concomitant]
  2. REBETOL [Suspect]
     Indication: HEPATIC CIRRHOSIS
     Dosage: PO
     Route: 048
     Dates: start: 20110805, end: 20110806
  3. REBETOL [Suspect]
     Indication: HEPATITIS C
     Dosage: PO
     Route: 048
     Dates: start: 20110805, end: 20110806
  4. SPIRONOLACTONE [Concomitant]
  5. RANITIDINE [Concomitant]
  6. VIRAFERON [Suspect]
     Indication: HEPATITIS C
     Dosage: 108 MCG, QD, SC
     Route: 058
     Dates: start: 20110805, end: 20110806
  7. VIRAFERON [Suspect]
     Indication: HEPATIC CIRRHOSIS
     Dosage: 108 MCG, QD, SC
     Route: 058
     Dates: start: 20110805, end: 20110806
  8. PROPRANOLOL [Concomitant]

REACTIONS (4)
  - PLATELET COUNT DECREASED [None]
  - WHITE BLOOD CELL COUNT DECREASED [None]
  - HAEMATEMESIS [None]
  - HAEMOGLOBIN DECREASED [None]
